FAERS Safety Report 10791806 (Version 1)
Quarter: 2015Q1

REPORT INFORMATION
  Report Type: Report from Study
  Country: US (occurrence: US)
  Receive Date: 20150213
  Receipt Date: 20150213
  Transmission Date: 20150721
  Serious: Yes (Other)
  Sender: FDA-Public Use
  Company Number: US-ROCHE-1535213

PATIENT

DRUGS (2)
  1. ALISERTIB [Suspect]
     Active Substance: ALISERTIB
     Indication: NON-HODGKIN^S LYMPHOMA REFRACTORY
     Dosage: FOR DAYS 1-7 OF 21 DAY CYCLES
     Route: 065
  2. RITUXIMAB [Suspect]
     Active Substance: RITUXIMAB
     Indication: NON-HODGKIN^S LYMPHOMA REFRACTORY
     Dosage: DAY 1 OF CYCLE 5-12 (COHORT A) AND DAY 1 OF CYCLE 3-10 (IN COHORT B)
     Route: 042

REACTIONS (8)
  - Cystitis [Unknown]
  - Pancreatitis [Unknown]
  - Dehydration [Unknown]
  - Mucosal inflammation [Unknown]
  - Embolism [Unknown]
  - Fatigue [Unknown]
  - Neutropenia [Unknown]
  - Pneumonitis [Unknown]
